FAERS Safety Report 7486258-3 (Version None)
Quarter: 2011Q2

REPORT INFORMATION
  Report Type: 
  Country: None (occurrence: None)
  Receive Date: 20110517
  Receipt Date: 20110317
  Transmission Date: 20111010
  Serious: No
  Sender: FDA-Public Use
  Company Number: A0919319A

PATIENT
  Sex: Male

DRUGS (3)
  1. DIOVAN [Concomitant]
  2. VOTRIENT [Suspect]
     Dosage: 800MG PER DAY
     Route: 065
     Dates: start: 20110305
  3. PROCARDIA [Concomitant]

REACTIONS (4)
  - FATIGUE [None]
  - BLOOD PRESSURE INCREASED [None]
  - ALOPECIA [None]
  - DYSPNOEA [None]
